FAERS Safety Report 8605984-3 (Version None)
Quarter: 2012Q3

REPORT INFORMATION
  Report Type: 
  Country: None (occurrence: None)
  Receive Date: 20120820
  Receipt Date: 20120807
  Transmission Date: 20120928
  Serious: Yes (Other)
  Sender: FDA-Public Use
  Company Number: GB-ROCHE-1092243

PATIENT
  Sex: Female
  Weight: 74.1 kg

DRUGS (2)
  1. LARIAM [Suspect]
     Indication: MALARIA PROPHYLAXIS
     Route: 048
     Dates: start: 20120621, end: 20120713
  2. PREGNACARE [Concomitant]
     Route: 048

REACTIONS (2)
  - ACUTE PSYCHOSIS [None]
  - MATERNAL EXPOSURE DURING PREGNANCY [None]
